FAERS Safety Report 15455284 (Version 1)
Quarter: 2018Q3

REPORT INFORMATION
  Report Type: Spontaneous
  Country: US (occurrence: US)
  Receive Date: 20180925
  Receipt Date: 20180925
  Transmission Date: 20181010
  Serious: No
  Sender: FDA-Public Use
  Company Number: None

PATIENT
  Sex: Male

DRUGS (1)
  1. GILENYA [Suspect]
     Active Substance: FINGOLIMOD HYDROCHLORIDE
     Indication: MULTIPLE SCLEROSIS
     Route: 048
     Dates: start: 201802

REACTIONS (12)
  - Fatigue [None]
  - Nocturia [None]
  - Nausea [None]
  - Loss of employment [None]
  - General symptom [None]
  - Thirst [None]
  - Food craving [None]
  - Cognitive disorder [None]
  - Condition aggravated [None]
  - Impaired work ability [None]
  - Muscular weakness [None]
  - Emotional disorder [None]
